FAERS Safety Report 23677795 (Version 2)
Quarter: 2025Q1

REPORT INFORMATION
  Report Type: Spontaneous
  Country: CA (occurrence: CA)
  Receive Date: 20240327
  Receipt Date: 20250124
  Transmission Date: 20250408
  Serious: Yes (Death, Other)
  Sender: SANDOZ
  Company Number: CA-SANDOZ-SDZ2023CA076083

PATIENT
  Sex: Female

DRUGS (210)
  1. ADALIMUMAB [Suspect]
     Active Substance: ADALIMUMAB
     Indication: Product used for unknown indication
     Route: 042
  2. ADALIMUMAB [Suspect]
     Active Substance: ADALIMUMAB
     Route: 040
  3. ADALIMUMAB [Suspect]
     Active Substance: ADALIMUMAB
     Route: 048
  4. ADALIMUMAB [Suspect]
     Active Substance: ADALIMUMAB
     Route: 058
  5. ADALIMUMAB [Suspect]
     Active Substance: ADALIMUMAB
     Route: 058
  6. ALENDRONATE SODIUM [Suspect]
     Active Substance: ALENDRONATE SODIUM
     Route: 016
  7. ALENDRONATE SODIUM [Suspect]
     Active Substance: ALENDRONATE SODIUM
     Route: 016
  8. ALENDRONATE SODIUM [Suspect]
     Active Substance: ALENDRONATE SODIUM
     Indication: Product used for unknown indication
     Route: 048
  9. APREMILAST [Suspect]
     Active Substance: APREMILAST
     Indication: Product used for unknown indication
     Dosage: 6 MG, 1 EVERY 1 DAYS
     Route: 065
  10. ABATACEPT [Suspect]
     Active Substance: ABATACEPT
     Indication: Product used for unknown indication
     Route: 042
  11. ALENDRONIC ACID [Suspect]
     Active Substance: ALENDRONIC ACID
     Indication: Product used for unknown indication
     Route: 016
  12. ALENDRONIC ACID [Suspect]
     Active Substance: ALENDRONIC ACID
     Route: 016
  13. ALENDRONIC ACID [Suspect]
     Active Substance: ALENDRONIC ACID
     Route: 048
  14. DICLOFENAC SODIUM [Suspect]
     Active Substance: DICLOFENAC SODIUM
     Indication: Product used for unknown indication
     Route: 049
  15. DICLOFENAC SODIUM [Suspect]
     Active Substance: DICLOFENAC SODIUM
     Route: 048
  16. BIOFLAVONOIDS [Suspect]
     Active Substance: BIOFLAVONOIDS
     Indication: Product used for unknown indication
     Route: 065
  17. CELECOXIB [Suspect]
     Active Substance: CELECOXIB
     Dosage: 1 DF, 1 EVERY 1 DAYS
     Route: 065
  18. CELECOXIB [Suspect]
     Active Substance: CELECOXIB
     Dosage: 2 DF, 1 EVERY 1 DAYS
     Route: 048
  19. CELECOXIB [Suspect]
     Active Substance: CELECOXIB
     Indication: Product used for unknown indication
     Route: 058
  20. CELECOXIB [Suspect]
     Active Substance: CELECOXIB
     Route: 065
  21. CLONIDINE HYDROCHLORIDE [Suspect]
     Active Substance: CLONIDINE HYDROCHLORIDE
     Indication: Product used for unknown indication
     Route: 065
  22. CHOLECALCIFEROL [Suspect]
     Active Substance: CHOLECALCIFEROL
     Route: 016
  23. CHOLECALCIFEROL [Suspect]
     Active Substance: CHOLECALCIFEROL
     Route: 058
  24. CHOLECALCIFEROL [Suspect]
     Active Substance: CHOLECALCIFEROL
     Indication: Product used for unknown indication
     Route: 065
  25. BENZOYLPAS CALCIUM ANHYDROUS [Suspect]
     Active Substance: BENZOYLPAS CALCIUM ANHYDROUS
     Indication: Product used for unknown indication
     Route: 065
  26. CALCIUM [Suspect]
     Active Substance: CALCIUM
     Indication: Product used for unknown indication
     Route: 065
  27. CALCIUM CARBONATE [Suspect]
     Active Substance: CALCIUM CARBONATE
     Indication: Product used for unknown indication
     Route: 016
  28. CALCIUM CITRATE [Suspect]
     Active Substance: CALCIUM CITRATE
     Indication: Product used for unknown indication
     Route: 065
  29. CALCIUM GLUBIONATE [Suspect]
     Active Substance: CALCIUM GLUBIONATE
     Indication: Product used for unknown indication
     Route: 065
  30. CERTOLIZUMAB PEGOL [Suspect]
     Active Substance: CERTOLIZUMAB PEGOL
     Indication: Product used for unknown indication
     Route: 058
  31. CETIRIZINE [Suspect]
     Active Substance: CETIRIZINE HYDROCHLORIDE
     Dosage: 10 MG, 1 EVERY 1 DAYS
     Route: 048
  32. CETIRIZINE [Suspect]
     Active Substance: CETIRIZINE HYDROCHLORIDE
     Indication: Product used for unknown indication
     Route: 065
  33. CETIRIZINE [Suspect]
     Active Substance: CETIRIZINE HYDROCHLORIDE
     Route: 065
  34. CETIRIZINE [Suspect]
     Active Substance: CETIRIZINE HYDROCHLORIDE
     Route: 048
  35. CHLORHEXIDINE [Suspect]
     Active Substance: CHLORHEXIDINE
     Indication: Product used for unknown indication
     Route: 002
  36. CHLORHEXIDINE GLUCONATE\ISOPROPYL ALCOHOL [Suspect]
     Active Substance: CHLORHEXIDINE GLUCONATE\ISOPROPYL ALCOHOL
     Route: 048
  37. CHLORHEXIDINE GLUCONATE\ISOPROPYL ALCOHOL [Suspect]
     Active Substance: CHLORHEXIDINE GLUCONATE\ISOPROPYL ALCOHOL
     Indication: Product used for unknown indication
     Route: 065
  38. CIMZIA [Suspect]
     Active Substance: CERTOLIZUMAB PEGOL
     Dosage: 1 DF, 1 EVERY 1 DAYS
     Route: 058
  39. CIMZIA [Suspect]
     Active Substance: CERTOLIZUMAB PEGOL
     Route: 058
  40. CIMZIA [Suspect]
     Active Substance: CERTOLIZUMAB PEGOL
     Indication: Product used for unknown indication
     Route: 058
  41. CORTISONE [Suspect]
     Active Substance: CORTISONE
     Indication: Product used for unknown indication
     Route: 048
  42. CORTISONE ACETATE [Suspect]
     Active Substance: CORTISONE ACETATE
     Indication: Product used for unknown indication
     Route: 003
  43. CORTISONE ACETATE [Suspect]
     Active Substance: CORTISONE ACETATE
     Route: 065
  44. DICLOFENAC [Suspect]
     Active Substance: DICLOFENAC
     Route: 065
  45. DICLOFENAC [Suspect]
     Active Substance: DICLOFENAC
     Indication: Product used for unknown indication
     Route: 065
  46. DICLOFENAC POTASSIUM [Suspect]
     Active Substance: DICLOFENAC POTASSIUM
     Indication: Product used for unknown indication
     Route: 065
  47. DICLOFENAC POTASSIUM [Suspect]
     Active Substance: DICLOFENAC POTASSIUM
     Route: 065
  48. DICLOFENAC SODIUM [Suspect]
     Active Substance: DICLOFENAC SODIUM
     Route: 065
  49. DICLOFENAC SODIUM [Suspect]
     Active Substance: DICLOFENAC SODIUM
     Route: 065
  50. DICLOFENAC SODIUM [Suspect]
     Active Substance: DICLOFENAC SODIUM
     Dosage: 50 MG, 1 EVERY 1 DAYS
     Route: 065
  51. DICLOFENAC SODIUM [Suspect]
     Active Substance: DICLOFENAC SODIUM
     Indication: Product used for unknown indication
     Route: 065
  52. DICLOFENAC SODIUM [Suspect]
     Active Substance: DICLOFENAC SODIUM
     Route: 058
  53. DICLOFENAC SODIUM [Suspect]
     Active Substance: DICLOFENAC SODIUM
     Route: 065
  54. DILTIAZEM HYDROCHLORIDE [Suspect]
     Active Substance: DILTIAZEM HYDROCHLORIDE
     Indication: Product used for unknown indication
     Route: 042
  55. DIPHENHYDRAMINE HYDROCHLORIDE [Suspect]
     Active Substance: DIPHENHYDRAMINE HYDROCHLORIDE
     Indication: Product used for unknown indication
     Route: 065
  56. DESOXIMETASONE [Suspect]
     Active Substance: DESOXIMETASONE
     Route: 003
  57. DESOXIMETASONE [Suspect]
     Active Substance: DESOXIMETASONE
     Indication: Product used for unknown indication
     Route: 048
  58. DESOXIMETASONE [Suspect]
     Active Substance: DESOXIMETASONE
     Route: 003
  59. DICLOFENAC DIETHYLAMINE [Suspect]
     Active Substance: DICLOFENAC DIETHYLAMINE
     Route: 065
  60. DICLOFENAC DIETHYLAMINE [Suspect]
     Active Substance: DICLOFENAC DIETHYLAMINE
     Route: 065
  61. DICLOFENAC DIETHYLAMINE [Suspect]
     Active Substance: DICLOFENAC DIETHYLAMINE
     Indication: Product used for unknown indication
     Route: 065
  62. DOXYCYCLINE HYCLATE [Suspect]
     Active Substance: DOXYCYCLINE HYCLATE
     Indication: Product used for unknown indication
     Route: 065
  63. ERELZI [Suspect]
     Active Substance: ETANERCEPT-SZZS
     Indication: Product used for unknown indication
     Route: 058
  64. ERELZI [Suspect]
     Active Substance: ETANERCEPT-SZZS
     Route: 058
  65. SULFISOMIDINE [Suspect]
     Active Substance: SULFISOMIDINE
     Indication: Product used for unknown indication
     Route: 065
  66. ENBREL [Suspect]
     Active Substance: ETANERCEPT
     Dosage: 20 MG, 1 EVERY 1 WEEKS
     Route: 058
  67. ENBREL [Suspect]
     Active Substance: ETANERCEPT
     Dosage: 20 MG, 1 EVERY 1 DAYS
     Route: 058
  68. ENBREL [Suspect]
     Active Substance: ETANERCEPT
     Dosage: 50 MG, 1 EVERY 1 WEEKS
     Route: 058
  69. ENBREL [Suspect]
     Active Substance: ETANERCEPT
     Indication: Product used for unknown indication
     Route: 058
  70. ENTYVIO [Suspect]
     Active Substance: VEDOLIZUMAB
     Indication: Product used for unknown indication
     Route: 065
  71. FOLIC ACID [Suspect]
     Active Substance: FOLIC ACID
     Route: 065
  72. FOLIC ACID [Suspect]
     Active Substance: FOLIC ACID
     Dosage: 1 MG, 1 EVERY 1 DAYS
     Route: 048
  73. FOLIC ACID [Suspect]
     Active Substance: FOLIC ACID
     Route: 065
  74. FOLIC ACID [Suspect]
     Active Substance: FOLIC ACID
     Route: 065
  75. FOLIC ACID [Suspect]
     Active Substance: FOLIC ACID
     Indication: Product used for unknown indication
     Route: 048
  76. FOLIC ACID [Suspect]
     Active Substance: FOLIC ACID
     Route: 065
  77. FOLIC ACID [Suspect]
     Active Substance: FOLIC ACID
     Route: 049
  78. FOLIC ACID [Suspect]
     Active Substance: FOLIC ACID
     Route: 065
  79. FOLIC ACID [Suspect]
     Active Substance: FOLIC ACID
     Route: 065
  80. FOLIC ACID [Suspect]
     Active Substance: FOLIC ACID
     Route: 048
  81. FRAMYCETIN SULFATE [Suspect]
     Active Substance: FRAMYCETIN SULFATE
     Indication: Product used for unknown indication
     Route: 065
  82. GOLIMUMAB [Suspect]
     Active Substance: GOLIMUMAB
     Indication: Product used for unknown indication
     Route: 065
  83. GRAMICIDIN [Suspect]
     Active Substance: GRAMICIDIN
     Indication: Product used for unknown indication
     Route: 065
  84. HUMIRA [Suspect]
     Active Substance: ADALIMUMAB
     Indication: Product used for unknown indication
     Route: 058
  85. HUMIRA [Suspect]
     Active Substance: ADALIMUMAB
     Route: 058
  86. HUMIRA [Suspect]
     Active Substance: ADALIMUMAB
     Route: 058
  87. HUMIRA [Suspect]
     Active Substance: ADALIMUMAB
     Route: 058
  88. HYDROCORTISONE ACETATE [Suspect]
     Active Substance: HYDROCORTISONE ACETATE
     Indication: Product used for unknown indication
     Route: 058
  89. HYDROCORTISONE SODIUM SUCCINATE [Suspect]
     Active Substance: HYDROCORTISONE SODIUM SUCCINATE
     Indication: Product used for unknown indication
     Route: 049
  90. HYDROCORTISONE SODIUM SUCCINATE [Suspect]
     Active Substance: HYDROCORTISONE SODIUM SUCCINATE
     Route: 048
  91. HYDROXYCHLOROQUINE [Suspect]
     Active Substance: HYDROXYCHLOROQUINE
     Indication: Product used for unknown indication
     Dosage: 40 MG, 1 EVERY 1 DAYS
     Route: 048
  92. HYDROXYCHLOROQUINE [Suspect]
     Active Substance: HYDROXYCHLOROQUINE
     Dosage: 400 MG, 1 EVERY 1 DAYS
     Route: 048
  93. HYDROXYCHLOROQUINE [Suspect]
     Active Substance: HYDROXYCHLOROQUINE
     Dosage: 400 MG, 1 EVERY 1 DAYS
     Route: 058
  94. HYDROXYCHLOROQUINE [Suspect]
     Active Substance: HYDROXYCHLOROQUINE
     Route: 048
  95. HYDROXYCHLOROQUINE SULFATE [Suspect]
     Active Substance: HYDROXYCHLOROQUINE SULFATE
     Dosage: 40 MG, 1 EVERY 1 DAYS
     Route: 050
  96. HYDROXYCHLOROQUINE SULFATE [Suspect]
     Active Substance: HYDROXYCHLOROQUINE SULFATE
     Indication: Product used for unknown indication
     Dosage: 400 MG, 1 EVERY 1 DAYS
     Route: 048
  97. HYDROXYCHLOROQUINE SULFATE [Suspect]
     Active Substance: HYDROXYCHLOROQUINE SULFATE
     Dosage: 400 MG, 1 EVERY 1 DAYS
     Route: 048
  98. HYDROXYCHLOROQUINE SULFATE [Suspect]
     Active Substance: HYDROXYCHLOROQUINE SULFATE
     Dosage: 400 MG, 1 EVERY 1 DAYS
     Route: 065
  99. HYDROXYCHLOROQUINE SULFATE [Suspect]
     Active Substance: HYDROXYCHLOROQUINE SULFATE
     Route: 048
  100. HYDROXYCHLOROQUINE SULFATE [Suspect]
     Active Substance: HYDROXYCHLOROQUINE SULFATE
     Route: 065
  101. HYDROXYCHLOROQUINE SULFATE [Suspect]
     Active Substance: HYDROXYCHLOROQUINE SULFATE
     Dosage: 4000 MG, 1 EVERY 1 DAYS
     Route: 049
  102. HYDROXYCHLOROQUINE SULFATE [Suspect]
     Active Substance: HYDROXYCHLOROQUINE SULFATE
     Route: 048
  103. IMURAN [Suspect]
     Active Substance: AZATHIOPRINE
     Indication: Product used for unknown indication
     Route: 065
  104. INFLIXIMAB [Suspect]
     Active Substance: INFLIXIMAB
     Indication: Product used for unknown indication
     Route: 065
  105. INFLIXIMAB [Suspect]
     Active Substance: INFLIXIMAB
     Route: 042
  106. ISOPROPYL ALCOHOL [Suspect]
     Active Substance: ISOPROPYL ALCOHOL
     Indication: Product used for unknown indication
     Route: 048
  107. METHOTREXATE [Suspect]
     Active Substance: METHOTREXATE
     Dosage: 15 MG, 1 EVERY 1 DAYS
     Route: 048
  108. METHOTREXATE [Suspect]
     Active Substance: METHOTREXATE
     Indication: Product used for unknown indication
     Route: 048
  109. METHOTREXATE [Suspect]
     Active Substance: METHOTREXATE
     Route: 048
  110. METHOTREXATE [Suspect]
     Active Substance: METHOTREXATE
     Dosage: 20 MG, 1 EVERY 1DAYS
     Route: 065
  111. METHOTREXATE [Suspect]
     Active Substance: METHOTREXATE
     Route: 013
  112. METHOTREXATE [Suspect]
     Active Substance: METHOTREXATE
     Route: 048
  113. METHOTREXATE [Suspect]
     Active Substance: METHOTREXATE
     Route: 048
  114. METHOTREXATE [Suspect]
     Active Substance: METHOTREXATE
     Route: 065
  115. METHOTREXATE [Suspect]
     Active Substance: METHOTREXATE
     Dosage: 25 MG, 1 EVERY 1 DAYS
     Route: 048
  116. METHOTREXATE [Suspect]
     Active Substance: METHOTREXATE
     Route: 013
  117. METHOTREXATE [Suspect]
     Active Substance: METHOTREXATE
     Route: 058
  118. METHOTREXATE [Suspect]
     Active Substance: METHOTREXATE
     Route: 048
  119. METHOTREXATE [Suspect]
     Active Substance: METHOTREXATE
     Dosage: 20 MG, 1 EVERY 1 DAYS
     Route: 058
  120. METHOTREXATE [Suspect]
     Active Substance: METHOTREXATE
     Route: 048
  121. METHOTREXATE [Suspect]
     Active Substance: METHOTREXATE
     Route: 016
  122. MORPHINE SULFATE [Suspect]
     Active Substance: MORPHINE SULFATE
     Indication: Product used for unknown indication
     Route: 065
  123. MYCOPHENOLATE MOFETIL [Suspect]
     Active Substance: MYCOPHENOLATE MOFETIL
     Indication: Product used for unknown indication
     Route: 065
  124. MESALAMINE [Suspect]
     Active Substance: MESALAMINE
     Indication: Product used for unknown indication
     Route: 065
  125. METHYLPREDNISOLONE SODIUM SUCCINATE [Suspect]
     Active Substance: METHYLPREDNISOLONE SODIUM SUCCINATE
     Indication: Product used for unknown indication
     Route: 048
  126. NAPROXEN SODIUM [Suspect]
     Active Substance: NAPROXEN SODIUM
     Indication: Product used for unknown indication
     Dosage: 1000 MG, 1 EVERY 1 DAYS
     Route: 065
  127. NAPROXEN SODIUM [Suspect]
     Active Substance: NAPROXEN SODIUM
     Dosage: 1000 MG, 1 EVERY 1 DAYS
     Route: 065
  128. NITROFURAZONE [Suspect]
     Active Substance: NITROFURAZONE
     Indication: Product used for unknown indication
     Route: 048
  129. NITROFURAZONE [Suspect]
     Active Substance: NITROFURAZONE
     Route: 048
  130. OXYCODONE [Suspect]
     Active Substance: OXYCODONE
     Indication: Product used for unknown indication
     Route: 065
  131. OXYCODONE [Suspect]
     Active Substance: OXYCODONE
     Route: 065
  132. ORENCIA [Suspect]
     Active Substance: ABATACEPT
     Route: 058
  133. ORENCIA [Suspect]
     Active Substance: ABATACEPT
     Dosage: 125 MG, 1 EVERY 1 WEEKS
     Route: 058
  134. ORENCIA [Suspect]
     Active Substance: ABATACEPT
     Route: 058
  135. ORENCIA [Suspect]
     Active Substance: ABATACEPT
     Dosage: 17.86 MG, 1 EVERY 1 DAYS
     Route: 042
  136. ORENCIA [Suspect]
     Active Substance: ABATACEPT
     Indication: Product used for unknown indication
     Dosage: 17.88 MG, 1 EVERY 1 DAYS
     Route: 065
  137. ORENCIA [Suspect]
     Active Substance: ABATACEPT
     Dosage: 18 MG, 1 EVERY 1 DAYS
     Route: 065
  138. ORENCIA [Suspect]
     Active Substance: ABATACEPT
     Route: 053
  139. ORENCIA [Suspect]
     Active Substance: ABATACEPT
     Route: 042
  140. ORENCIA [Suspect]
     Active Substance: ABATACEPT
     Route: 058
  141. ORENCIA [Suspect]
     Active Substance: ABATACEPT
     Route: 065
  142. ORENCIA [Suspect]
     Active Substance: ABATACEPT
     Route: 065
  143. OTEZLA [Suspect]
     Active Substance: APREMILAST
     Route: 048
  144. OTEZLA [Suspect]
     Active Substance: APREMILAST
     Route: 065
  145. OTEZLA [Suspect]
     Active Substance: APREMILAST
     Route: 065
  146. OTEZLA [Suspect]
     Active Substance: APREMILAST
     Indication: Product used for unknown indication
     Dosage: 6 MG, 1 EVERY 1 DAYS
     Route: 048
  147. OTEZLA [Suspect]
     Active Substance: APREMILAST
     Dosage: 6 MG, 1 EVERY 1 DAYS
     Route: 065
  148. OXYCODONE TEREPHTHALATE [Suspect]
     Active Substance: OXYCODONE TEREPHTHALATE
     Indication: Product used for unknown indication
     Route: 065
  149. PREGABALIN [Suspect]
     Active Substance: PREGABALIN
     Indication: Product used for unknown indication
     Route: 065
  150. PANTOPRAZOLE SODIUM ANHYDROUS [Suspect]
     Active Substance: PANTOPRAZOLE SODIUM ANHYDROUS
     Indication: Product used for unknown indication
     Route: 016
  151. PANTOPRAZOLE SODIUM ANHYDROUS [Suspect]
     Active Substance: PANTOPRAZOLE SODIUM ANHYDROUS
     Route: 016
  152. PARA-AMINOSALICYLIC ACID [Suspect]
     Active Substance: AMINOSALICYLIC ACID
     Indication: Product used for unknown indication
     Route: 065
  153. ACETAMINOPHEN [Suspect]
     Active Substance: ACETAMINOPHEN
     Indication: Product used for unknown indication
     Route: 065
  154. ACETAMINOPHEN [Suspect]
     Active Substance: ACETAMINOPHEN
     Route: 065
  155. PHTHALYLSULFATHIAZOLE [Suspect]
     Active Substance: PHTHALYLSULFATHIAZOLE
     Dosage: 1000 MG, 1 EVERY 1 DAYS
     Route: 048
  156. PHTHALYLSULFATHIAZOLE [Suspect]
     Active Substance: PHTHALYLSULFATHIAZOLE
     Dosage: 1000 MG, 1 EVERY 1 DAYS
     Route: 048
  157. PHTHALYLSULFATHIAZOLE [Suspect]
     Active Substance: PHTHALYLSULFATHIAZOLE
     Dosage: 2000 MG, 1 EVERY 1 DAYS
     Route: 048
  158. PHTHALYLSULFATHIAZOLE [Suspect]
     Active Substance: PHTHALYLSULFATHIAZOLE
     Dosage: 2000 MG, 1 EVERY 1 DAYS
     Route: 048
  159. PHTHALYLSULFATHIAZOLE [Suspect]
     Active Substance: PHTHALYLSULFATHIAZOLE
     Dosage: 2000 MG, 1 EVERY 1 DAYS
     Route: 058
  160. PHTHALYLSULFATHIAZOLE [Suspect]
     Active Substance: PHTHALYLSULFATHIAZOLE
     Route: 050
  161. PHTHALYLSULFATHIAZOLE [Suspect]
     Active Substance: PHTHALYLSULFATHIAZOLE
     Indication: Product used for unknown indication
     Route: 048
  162. PHTHALYLSULFATHIAZOLE [Suspect]
     Active Substance: PHTHALYLSULFATHIAZOLE
     Route: 016
  163. PREDNISONE [Suspect]
     Active Substance: PREDNISONE
     Route: 065
  164. PREDNISONE [Suspect]
     Active Substance: PREDNISONE
     Route: 048
  165. PREDNISONE [Suspect]
     Active Substance: PREDNISONE
     Route: 048
  166. PREDNISONE [Suspect]
     Active Substance: PREDNISONE
     Indication: Product used for unknown indication
     Route: 065
  167. PREDNISONE [Suspect]
     Active Substance: PREDNISONE
     Route: 048
  168. PREDNISONE [Suspect]
     Active Substance: PREDNISONE
     Route: 048
  169. PREDNISONE [Suspect]
     Active Substance: PREDNISONE
     Route: 048
  170. PSEUDOEPHEDRINE HYDROCHLORIDE [Suspect]
     Active Substance: PSEUDOEPHEDRINE HYDROCHLORIDE
     Indication: Product used for unknown indication
     Route: 065
  171. QUETIAPINE FUMARATE [Suspect]
     Active Substance: QUETIAPINE FUMARATE
     Indication: Product used for unknown indication
     Route: 065
  172. DIETARY SUPPLEMENT\HERBALS [Suspect]
     Active Substance: DIETARY SUPPLEMENT\HERBALS
     Indication: Product used for unknown indication
     Route: 048
  173. SALICYLIC ACID [Suspect]
     Active Substance: SALICYLIC ACID
     Indication: Product used for unknown indication
     Route: 065
  174. SODIUM FLUORIDE [Suspect]
     Active Substance: SODIUM FLUORIDE
     Indication: Product used for unknown indication
     Route: 065
  175. SULFASALAZINE [Suspect]
     Active Substance: SULFASALAZINE
     Route: 058
  176. SULFASALAZINE [Suspect]
     Active Substance: SULFASALAZINE
     Indication: Product used for unknown indication
     Route: 058
  177. SULFASALAZINE [Suspect]
     Active Substance: SULFASALAZINE
     Route: 058
  178. SULFASALAZINE [Suspect]
     Active Substance: SULFASALAZINE
     Route: 058
  179. SULFASALAZINE [Suspect]
     Active Substance: SULFASALAZINE
     Dosage: 2000 MG, 1 EVERY 1 DAYS
     Route: 048
  180. SULFASALAZINE [Suspect]
     Active Substance: SULFASALAZINE
     Route: 058
  181. SULFASALAZINE [Suspect]
     Active Substance: SULFASALAZINE
     Route: 058
  182. THYMOL [Suspect]
     Active Substance: THYMOL
     Indication: Product used for unknown indication
     Route: 048
  183. THYMOL [Suspect]
     Active Substance: THYMOL
     Route: 048
  184. TOCILIZUMAB [Suspect]
     Active Substance: TOCILIZUMAB
     Route: 042
  185. TOCILIZUMAB [Suspect]
     Active Substance: TOCILIZUMAB
     Indication: Product used for unknown indication
     Route: 048
  186. TOCILIZUMAB [Suspect]
     Active Substance: TOCILIZUMAB
     Dosage: 2912 MG, 1 EVERY 1 WEEKS
     Route: 042
  187. TOCILIZUMAB [Suspect]
     Active Substance: TOCILIZUMAB
     Route: 058
  188. TOCILIZUMAB [Suspect]
     Active Substance: TOCILIZUMAB
     Route: 058
  189. TOCILIZUMAB [Suspect]
     Active Substance: TOCILIZUMAB
     Route: 042
  190. TOCILIZUMAB [Suspect]
     Active Substance: TOCILIZUMAB
     Route: 042
  191. TOCILIZUMAB [Suspect]
     Active Substance: TOCILIZUMAB
     Route: 058
  192. TOCILIZUMAB [Suspect]
     Active Substance: TOCILIZUMAB
     Dosage: 752 MG, 1 EVERY 1 WEEKS
     Route: 065
  193. TOCILIZUMAB [Suspect]
     Active Substance: TOCILIZUMAB
     Route: 042
  194. TOCILIZUMAB [Suspect]
     Active Substance: TOCILIZUMAB
     Route: 058
  195. TOCILIZUMAB [Suspect]
     Active Substance: TOCILIZUMAB
     Route: 016
  196. TOCILIZUMAB [Suspect]
     Active Substance: TOCILIZUMAB
     Route: 016
  197. TOFACITINIB CITRATE [Suspect]
     Active Substance: TOFACITINIB CITRATE
     Indication: Product used for unknown indication
     Dosage: 10 MG, 1 EVERY 1 DAYS
     Route: 065
  198. TRAMADOL HYDROCHLORIDE [Suspect]
     Active Substance: TRAMADOL HYDROCHLORIDE
     Indication: Product used for unknown indication
     Route: 065
  199. TRIAMCINOLONE ACETONIDE [Suspect]
     Active Substance: TRIAMCINOLONE ACETONIDE
     Indication: Product used for unknown indication
     Route: 014
  200. TRICLOSAN [Suspect]
     Active Substance: TRICLOSAN
     Indication: Product used for unknown indication
     Route: 065
  201. SULFAMETHOXAZOLE\TRIMETHOPRIM [Suspect]
     Active Substance: SULFAMETHOXAZOLE\TRIMETHOPRIM
     Indication: Product used for unknown indication
     Route: 067
  202. SULFAMETHOXAZOLE\TRIMETHOPRIM [Suspect]
     Active Substance: SULFAMETHOXAZOLE\TRIMETHOPRIM
     Route: 067
  203. TYROTHRICIN [Suspect]
     Active Substance: TYROTHRICIN
     Route: 048
  204. TYROTHRICIN [Suspect]
     Active Substance: TYROTHRICIN
     Indication: Product used for unknown indication
     Route: 048
  205. USTEKINUMAB [Suspect]
     Active Substance: USTEKINUMAB
     Indication: Product used for unknown indication
     Route: 042
  206. VITAMIN D3 [Suspect]
     Active Substance: CHOLECALCIFEROL
     Route: 016
  207. VITAMIN D3 [Suspect]
     Active Substance: CHOLECALCIFEROL
     Route: 058
  208. VITAMIN D3 [Suspect]
     Active Substance: CHOLECALCIFEROL
     Indication: Product used for unknown indication
     Route: 065
  209. XELJANZ [Suspect]
     Active Substance: TOFACITINIB CITRATE
     Dosage: 10 MG, 1 EVERY 1 DAYS
     Route: 048
  210. XELJANZ [Suspect]
     Active Substance: TOFACITINIB CITRATE
     Indication: Product used for unknown indication
     Route: 065

REACTIONS (13)
  - Musculoskeletal stiffness [Fatal]
  - Nasopharyngitis [Fatal]
  - Nausea [Fatal]
  - Oedema [Fatal]
  - Oedema peripheral [Fatal]
  - Osteoarthritis [Fatal]
  - Osteoporosis [Fatal]
  - Pain [Fatal]
  - Pain in extremity [Fatal]
  - Pemphigus [Fatal]
  - Pericarditis [Fatal]
  - Peripheral swelling [Fatal]
  - Pneumonia [Fatal]
